FAERS Safety Report 16185125 (Version 2)
Quarter: 2019Q2

REPORT INFORMATION
  Report Type: Spontaneous
  Country: US (occurrence: US)
  Receive Date: 20190411
  Receipt Date: 20190415
  Transmission Date: 20190711
  Serious: Yes (Other)
  Sender: FDA-Public Use
  Company Number: US-PFIZER INC-2019147176

PATIENT
  Age: 38 Year
  Sex: Female
  Weight: 40.82 kg

DRUGS (2)
  1. LYRICA [Suspect]
     Active Substance: PREGABALIN
     Indication: SPINAL DEFORMITY
     Dosage: 100 MG, 3X/DAY
     Route: 048
     Dates: start: 2008
  2. LYRICA [Suspect]
     Active Substance: PREGABALIN
     Dosage: 50 MG, AS NEEDED (3 TIMES A DAY)

REACTIONS (3)
  - Spinal cord injury [Unknown]
  - Drug effective for unapproved indication [Unknown]
  - Paralysis [Unknown]

NARRATIVE: CASE EVENT DATE: 2008
